FAERS Safety Report 18770279 (Version 2)
Quarter: 2021Q1

REPORT INFORMATION
  Report Type: Spontaneous
  Country: US (occurrence: US)
  Receive Date: 20210122
  Receipt Date: 20210203
  Transmission Date: 20210419
  Serious: No
  Sender: FDA-Public Use
  Company Number: US-AMGEN-USASP2021009869

PATIENT
  Age: 93 Year
  Sex: Female
  Weight: 58.2 kg

DRUGS (3)
  1. XGEVA [Suspect]
     Active Substance: DENOSUMAB
     Indication: METASTASES TO BONE
     Dosage: 120 MILLIGRAM, Q3MO
     Route: 030
     Dates: start: 20210120
  2. XGEVA [Suspect]
     Active Substance: DENOSUMAB
     Indication: PROPHYLAXIS
  3. XGEVA [Suspect]
     Active Substance: DENOSUMAB
     Indication: BREAST CANCER

REACTIONS (1)
  - Incorrect route of product administration [Unknown]

NARRATIVE: CASE EVENT DATE: 20210120
